FAERS Safety Report 7247929-7 (Version None)
Quarter: 2011Q1

REPORT INFORMATION
  Report Type: 
  Country: None (occurrence: None)
  Receive Date: 20110127
  Receipt Date: 20110125
  Transmission Date: 20110831
  Serious: Yes (Hospitalization, Disabling, Other)
  Sender: FDA-Public Use
  Company Number: FR-ABBOTT-10P-056-0693969-00

PATIENT
  Sex: Female

DRUGS (4)
  1. CORTANCYL [Suspect]
     Indication: RHEUMATOID ARTHRITIS
     Route: 048
  2. HUMIRA [Suspect]
     Indication: RHEUMATOID ARTHRITIS
     Route: 058
     Dates: end: 20091209
  3. OROKEN [Concomitant]
     Indication: PRODUCT USED FOR UNKNOWN INDICATION
     Route: 048
     Dates: start: 20091108, end: 20091113
  4. METHOTREXATE [Suspect]
     Indication: RHEUMATOID ARTHRITIS
     Route: 048
     Dates: end: 20091209

REACTIONS (6)
  - STAPHYLOCOCCAL INFECTION [None]
  - ABSCESS LIMB [None]
  - DEVICE DISLOCATION [None]
  - FISTULA [None]
  - OSTEITIS [None]
  - ASCITES [None]
